FAERS Safety Report 5905434-1 (Version None)
Quarter: 2008Q4

REPORT INFORMATION
  Report Type: 
  Country: None (occurrence: None)
  Receive Date: 20081001
  Receipt Date: 20081001
  Transmission Date: 20090506
  Serious: No
  Sender: FDA-Public Use
  Company Number: None

PATIENT
  Sex: Female
  Weight: 60.782 kg

DRUGS (4)
  1. GENERIC YASMIN [Suspect]
     Indication: ACNE
     Dosage: ONCE QD PO
     Route: 048
     Dates: start: 20080801
  2. MINOCYCLINE HCL [Concomitant]
  3. TAZORAC [Concomitant]
  4. AZELEX [Concomitant]

REACTIONS (3)
  - ACNE [None]
  - CONDITION AGGRAVATED [None]
  - THERAPEUTIC RESPONSE UNEXPECTED WITH DRUG SUBSTITUTION [None]
